FAERS Safety Report 16538375 (Version 4)
Quarter: 2020Q3

REPORT INFORMATION
  Report Type: Report from Study
  Country: CA (occurrence: CA)
  Receive Date: 20190708
  Receipt Date: 20200703
  Transmission Date: 20201102
  Serious: Yes (Other)
  Sender: FDA-Public Use
  Company Number: CA-GLAXOSMITHKLINE-CA2019AMR120152

PATIENT
  Sex: Male

DRUGS (2)
  1. MEPOLIZUMAB [Suspect]
     Active Substance: MEPOLIZUMAB
     Indication: ASTHMA
     Dosage: 100 MG, Z MONTHLY
     Route: 042
     Dates: start: 20181019
  2. MEPOLIZUMAB [Suspect]
     Active Substance: MEPOLIZUMAB
     Dosage: 100 MG, Z MONTHLY
     Route: 042
     Dates: start: 20200522

REACTIONS (7)
  - Blood pressure systolic increased [Recovering/Resolving]
  - Abdominal pain upper [Recovering/Resolving]
  - Hypertension [Recovering/Resolving]
  - Localised infection [Recovering/Resolving]
  - Lymphoma [Recovering/Resolving]
  - Intestinal obstruction [Unknown]
  - Weight decreased [Unknown]
